FAERS Safety Report 9170794 (Version 2)
Quarter: 2013Q2

REPORT INFORMATION
  Report Type: Spontaneous
  Country: US (occurrence: US)
  Receive Date: 20130319
  Receipt Date: 20130418
  Transmission Date: 20140414
  Serious: No
  Sender: FDA-Public Use
  Company Number: US-PFIZER INC-2013088503

PATIENT
  Age: 46 Year
  Sex: Female
  Weight: 65.76 kg

DRUGS (4)
  1. NEURONTIN [Suspect]
     Dosage: UNK
  2. DOXYCYCLINE HYCLATE [Suspect]
     Dosage: UNK
  3. KEFLEX [Suspect]
     Dosage: UNK
  4. CLARITIN-D [Suspect]
     Dosage: UNK

REACTIONS (1)
  - Drug hypersensitivity [Unknown]
